FAERS Safety Report 23390635 (Version 1)
Quarter: 2024Q1

REPORT INFORMATION
  Report Type: Spontaneous
  Country: GB (occurrence: GB)
  Receive Date: 20240111
  Receipt Date: 20240111
  Transmission Date: 20240409
  Serious: Yes (Death)
  Sender: FDA-Public Use
  Company Number: None

PATIENT

DRUGS (1)
  1. FLUOXETINE [Suspect]
     Active Substance: FLUOXETINE HYDROCHLORIDE
     Indication: Anxiety
     Route: 065
     Dates: start: 20211222

REACTIONS (3)
  - Arrhythmia [Fatal]
  - Palpitations [Fatal]
  - Drug level increased [Fatal]

NARRATIVE: CASE EVENT DATE: 20220131
